FAERS Safety Report 10899159 (Version 2)
Quarter: 2016Q2

REPORT INFORMATION
  Report Type: Spontaneous
  Country: US (occurrence: US)
  Receive Date: 20150309
  Receipt Date: 20160422
  Transmission Date: 20160815
  Serious: Yes (Hospitalization, Congenital Anomaly, Other)
  Sender: FDA-Public Use
  Company Number: US-APOTEX-2015AP006964

PATIENT
  Age: 0 Day
  Sex: Female
  Weight: 5 kg

DRUGS (2)
  1. PAXIL [Suspect]
     Active Substance: PAROXETINE HYDROCHLORIDE
     Indication: DEPRESSION
     Dosage: UNK
     Route: 064
     Dates: start: 1996, end: 1997
  2. PAXIL [Suspect]
     Active Substance: PAROXETINE HYDROCHLORIDE
     Indication: ANXIETY

REACTIONS (6)
  - Localised infection [Unknown]
  - Infantile apnoea [Recovered/Resolved]
  - Congenital anomaly [Unknown]
  - Talipes [Recovering/Resolving]
  - Female genital tract fistula [Unknown]
  - Foetal exposure during pregnancy [Unknown]

NARRATIVE: CASE EVENT DATE: 19970323
